FAERS Safety Report 5885835-0 (Version None)
Quarter: 2008Q3

REPORT INFORMATION
  Report Type: 
  Country: None (occurrence: None)
  Receive Date: 20080917
  Receipt Date: 20080916
  Transmission Date: 20090109
  Serious: Yes (Other)
  Sender: FDA-Public Use
  Company Number: ES-BRISTOL-MYERS SQUIBB COMPANY-12332250

PATIENT
  Age: 41 Year
  Sex: Male

DRUGS (7)
  1. VIDEX EC [Suspect]
     Indication: HIV INFECTION
     Route: 048
     Dates: start: 20000101
  2. VIRAMUNE [Suspect]
     Indication: HIV INFECTION
     Route: 048
     Dates: start: 20000101
  3. EPIVIR [Suspect]
     Indication: HIV INFECTION
     Route: 048
     Dates: start: 20000101
  4. MAYGACE [Concomitant]
     Indication: LIPODYSTROPHY ACQUIRED
     Route: 048
     Dates: start: 20020101
  5. MAYGACE [Concomitant]
     Indication: HIV INFECTION
     Route: 048
     Dates: start: 20020101
  6. LIPLAT [Concomitant]
     Indication: LIPID METABOLISM DISORDER
     Route: 048
     Dates: start: 20010101
  7. LIPLAT [Concomitant]
     Indication: HIV INFECTION
     Route: 048
     Dates: start: 20010101

REACTIONS (2)
  - ANGINA PECTORIS [None]
  - CARDIOMYOPATHY [None]
